FAERS Safety Report 26196120 (Version 1)
Quarter: 2025Q4

REPORT INFORMATION
  Report Type: Spontaneous
  Country: CN (occurrence: CN)
  Receive Date: 20251224
  Receipt Date: 20251224
  Transmission Date: 20260118
  Serious: Yes (Other)
  Sender: ABBVIE
  Company Number: CN-ABBVIE-6599729

PATIENT
  Age: 47 Year
  Sex: Male

DRUGS (10)
  1. VENETOCLAX [Suspect]
     Active Substance: VENETOCLAX
     Indication: Acute monocytic leukaemia
     Dosage: DAY 1
     Route: 048
     Dates: start: 20250115, end: 20250115
  2. VENETOCLAX [Suspect]
     Active Substance: VENETOCLAX
     Indication: Acute monocytic leukaemia
     Dosage: DAY 2
     Route: 048
     Dates: start: 20250116, end: 20250116
  3. VENETOCLAX [Suspect]
     Active Substance: VENETOCLAX
     Indication: Acute monocytic leukaemia
     Dosage: DAY 3-10
     Route: 048
     Dates: start: 20250117, end: 20250124
  4. VENETOCLAX [Suspect]
     Active Substance: VENETOCLAX
     Indication: Acute monocytic leukaemia
     Dosage: DOSE REDUCED (DAY 11-28)
     Route: 048
     Dates: start: 20250125, end: 20250211
  5. VENETOCLAX [Suspect]
     Active Substance: VENETOCLAX
     Indication: Acute monocytic leukaemia
     Dosage: DAY 1
     Route: 048
     Dates: start: 20250527, end: 20250527
  6. VENETOCLAX [Suspect]
     Active Substance: VENETOCLAX
     Indication: Acute monocytic leukaemia
     Dosage: DAY 2
     Route: 048
     Dates: start: 20250528, end: 20250528
  7. VENETOCLAX [Suspect]
     Active Substance: VENETOCLAX
     Indication: Acute monocytic leukaemia
     Dosage: DAY 3-28
     Route: 048
     Dates: start: 20250529, end: 20250623
  8. AZACITIDINE [Suspect]
     Active Substance: AZACITIDINE
     Indication: Acute monocytic leukaemia
     Dosage: DAY 1-7
     Route: 065
  9. MITOXANTRONE HYDROCHLORIDE [Concomitant]
     Active Substance: MITOXANTRONE HYDROCHLORIDE
     Indication: Acute monocytic leukaemia
     Route: 065
     Dates: start: 20250310
  10. CYTARABINE [Concomitant]
     Active Substance: CYTARABINE
     Indication: Acute monocytic leukaemia
     Dosage: DAY 1-7
     Route: 065

REACTIONS (2)
  - Chloroma [Recovered/Resolved]
  - Therapeutic product effect incomplete [Unknown]

NARRATIVE: CASE EVENT DATE: 20250101
